FAERS Safety Report 25066594 (Version 1)
Quarter: 2025Q1

REPORT INFORMATION
  Report Type: Spontaneous
  Country: SG (occurrence: SG)
  Receive Date: 20250312
  Receipt Date: 20250312
  Transmission Date: 20250409
  Serious: Yes (Other)
  Sender: ROCHE
  Company Number: SG-CHEPLA-2025002999

PATIENT
  Age: 37 Week
  Weight: 2.4 kg

DRUGS (1)
  1. VALGANCICLOVIR [Suspect]
     Active Substance: VALGANCICLOVIR
     Indication: Congenital cytomegalovirus infection
     Route: 065

REACTIONS (3)
  - Neutropenia [Unknown]
  - Deafness [Recovered/Resolved]
  - Off label use [Unknown]
